FAERS Safety Report 6161859-3 (Version None)
Quarter: 2009Q2

REPORT INFORMATION
  Report Type: 
  Country: None (occurrence: None)
  Receive Date: 20090421
  Receipt Date: 20090415
  Transmission Date: 20091009
  Serious: Yes (Hospitalization)
  Sender: FDA-Public Use
  Company Number: A0778736A

PATIENT
  Age: 64 Year
  Sex: Male

DRUGS (4)
  1. WELLBUTRIN [Suspect]
     Indication: DEPRESSION
     Route: 048
     Dates: start: 20031001, end: 20090407
  2. MORPHINE [Concomitant]
  3. AMBIEN [Concomitant]
  4. ELAVIL [Concomitant]

REACTIONS (5)
  - AGITATION [None]
  - COLON CANCER [None]
  - HALLUCINATION [None]
  - MYOCARDIAL INFARCTION [None]
  - PAIN [None]
